FAERS Safety Report 13898328 (Version 1)
Quarter: 2017Q3

REPORT INFORMATION
  Report Type: Spontaneous
  Country: US (occurrence: None)
  Receive Date: 20170823
  Receipt Date: 20170823
  Transmission Date: 20171127
  Serious: Yes (Death)
  Sender: FDA-Public Use
  Company Number: None

PATIENT
  Age: 26 Year
  Sex: Female

DRUGS (10)
  1. GLEOSTINE [Suspect]
     Active Substance: LOMUSTINE
     Indication: THROMBOCYTOPENIA
     Dosage: 150 MG EVERY 6 WK BY MOUTH
     Route: 048
     Dates: start: 20170110, end: 201708
  2. ONDANSETRON [Concomitant]
     Active Substance: ONDANSETRON
  3. POT CL [Concomitant]
  4. CEPHALEXIN. [Concomitant]
     Active Substance: CEPHALEXIN
  5. DIAZEPAM. [Concomitant]
     Active Substance: DIAZEPAM
  6. LYRICA [Concomitant]
     Active Substance: PREGABALIN
  7. OXYCODONE [Concomitant]
     Active Substance: OXYCODONE
  8. PROMACTA [Suspect]
     Active Substance: ELTROMBOPAG OLAMINE
     Indication: THROMBOCYTOPENIA
     Route: 048
     Dates: start: 20161115, end: 201708
  9. DULOXETINE. [Concomitant]
     Active Substance: DULOXETINE
  10. TOPIRAMATE. [Concomitant]
     Active Substance: TOPIRAMATE

REACTIONS (1)
  - Death [None]

NARRATIVE: CASE EVENT DATE: 20170820
